FAERS Safety Report 6403370-8 (Version None)
Quarter: 2009Q4

REPORT INFORMATION
  Report Type: 
  Country: None (occurrence: None)
  Receive Date: 20091016
  Receipt Date: 20091007
  Transmission Date: 20100525
  Serious: Yes (Hospitalization)
  Sender: FDA-Public Use
  Company Number: SE-ROCHE-660957

PATIENT

DRUGS (2)
  1. CAPECITABINE [Suspect]
     Indication: OESOPHAGEAL CARCINOMA
     Dosage: STOPPED FOR TWO DAYS
     Route: 048
     Dates: start: 20090911, end: 20090914
  2. TAXOTERE [Suspect]
     Indication: OESOPHAGEAL CARCINOMA
     Dosage: FORM: INFUSION
     Route: 042

REACTIONS (1)
  - DYSPHAGIA [None]
